FAERS Safety Report 6613460-2 (Version None)
Quarter: 2010Q1

REPORT INFORMATION
  Report Type: 
  Country: None (occurrence: None)
  Receive Date: 20100225
  Receipt Date: 20100212
  Transmission Date: 20100710
  Serious: Yes (Life-Threatening, Other)
  Sender: FDA-Public Use
  Company Number: 1000010004

PATIENT
  Age: 49 Year
  Sex: Female

DRUGS (6)
  1. ESCITALOPRAM OXALATE [Suspect]
     Indication: DEPRESSION
     Dosage: 10 MG (10 MG, 1 IN 1 D), ORAL
     Route: 048
     Dates: start: 20090615, end: 20090801
  2. AMITRIPTYLINE HCL [Concomitant]
  3. LEVOTHYROXINE SODIUM [Concomitant]
  4. DICLOFENAC [Concomitant]
  5. PARACETAMOL [Concomitant]
  6. IRON (TABLETS) [Concomitant]

REACTIONS (19)
  - ABNORMAL DREAMS [None]
  - ADJUSTMENT DISORDER [None]
  - CONDITION AGGRAVATED [None]
  - COUGH [None]
  - DEPRESSION [None]
  - DRUG INEFFECTIVE [None]
  - ECZEMA [None]
  - EMOTIONAL DISORDER [None]
  - FALL [None]
  - FATIGUE [None]
  - HYPERPHAGIA [None]
  - INSOMNIA [None]
  - NASOPHARYNGITIS [None]
  - NECK PAIN [None]
  - OROPHARYNGEAL PAIN [None]
  - OVERDOSE [None]
  - SELF-INJURIOUS IDEATION [None]
  - SUICIDAL IDEATION [None]
  - WEIGHT INCREASED [None]
